FAERS Safety Report 22182312 (Version 2)
Quarter: 2023Q2

REPORT INFORMATION
  Report Type: Spontaneous
  Country: ES (occurrence: ES)
  Receive Date: 20230406
  Receipt Date: 20230414
  Transmission Date: 20230721
  Serious: Yes (Other)
  Sender: FDA-Public Use
  Company Number: ES-ASTELLAS-2023EU000549

PATIENT
  Age: 12 Year
  Sex: Female

DRUGS (4)
  1. TACROLIMUS [Suspect]
     Active Substance: TACROLIMUS
     Indication: Multivisceral transplantation
     Dosage: UNK UNK, UNKNOWN FREQ.
  2. EVEROLIMUS [Concomitant]
     Active Substance: EVEROLIMUS
     Indication: Multivisceral transplantation
     Dosage: UNK UNK, UNKNOWN FREQ.
  3. METHYLPREDNISOLONE [Concomitant]
     Active Substance: METHYLPREDNISOLONE
     Indication: Multivisceral transplantation
     Dosage: 0.3 MG/KG, ONCE DAILY
  4. RUXOLITINIB [Concomitant]
     Active Substance: RUXOLITINIB
     Indication: Graft versus host disease
     Dosage: UNK UNK, UNKNOWN FREQ.

REACTIONS (8)
  - Post transplant lymphoproliferative disorder [Recovered/Resolved]
  - Diffuse large B-cell lymphoma [Recovered/Resolved]
  - Epstein-Barr virus infection reactivation [Recovered/Resolved]
  - Epstein-Barr virus infection reactivation [Recovered/Resolved]
  - Malignant neoplasm progression [Recovered/Resolved]
  - Lymphopenia [Recovered/Resolved]
  - Off label use [Unknown]
  - Product use issue [Unknown]
